FAERS Safety Report 8553225-8 (Version None)
Quarter: 2012Q3

REPORT INFORMATION
  Report Type: 
  Country: None (occurrence: None)
  Receive Date: 20120731
  Receipt Date: 20120723
  Transmission Date: 20120928
  Serious: Yes (Hospitalization)
  Sender: FDA-Public Use
  Company Number: JP-VERTEX PHARMACEUTICALS INC.-AE-2012-005504

PATIENT
  Age: 61 Year
  Sex: Male

DRUGS (24)
  1. TELAVIC (TELAPREVIR) [Suspect]
     Indication: HEPATITIS C
     Route: 048
     Dates: start: 20120222, end: 20120302
  2. CANDESARTAN CILEXETIL AND HYDROCHLOROTHIAZIDE [Concomitant]
     Route: 048
  3. RINDERON A [Concomitant]
     Route: 061
  4. RIBAVIRIN [Concomitant]
     Route: 048
     Dates: start: 20120303, end: 20120313
  5. WARFARIN POTASSIUM [Concomitant]
     Route: 048
     Dates: start: 20120405, end: 20120418
  6. TELAVIC (TELAPREVIR) [Suspect]
     Route: 048
     Dates: start: 20120329, end: 20120411
  7. RIBAVIRIN [Concomitant]
     Indication: HEPATITIS C
     Route: 048
     Dates: start: 20120222, end: 20120302
  8. RIBAVIRIN [Concomitant]
     Route: 048
     Dates: start: 20120517
  9. ASPIRIN [Concomitant]
     Route: 048
  10. WARFARIN POTASSIUM [Concomitant]
     Route: 048
     Dates: end: 20120404
  11. NIZORAL [Concomitant]
     Route: 061
  12. TALION OD [Concomitant]
     Route: 048
     Dates: start: 20120221, end: 20120403
  13. RIBAVIRIN [Concomitant]
     Route: 048
     Dates: start: 20120502, end: 20120516
  14. NORVASC [Concomitant]
     Route: 048
     Dates: end: 20120318
  15. MYSER CREAM 0.05% [Concomitant]
     Route: 061
  16. TELAVIC (TELAPREVIR) [Suspect]
     Route: 048
     Dates: start: 20120303, end: 20120328
  17. WARFARIN POTASSIUM [Concomitant]
     Route: 048
     Dates: start: 20120419, end: 20120425
  18. LOCHOLEST [Concomitant]
     Route: 048
  19. RIBAVIRIN [Concomitant]
     Route: 048
     Dates: start: 20120314, end: 20120410
  20. NORVASC [Concomitant]
     Route: 048
     Dates: start: 20120319
  21. NERISONA [Concomitant]
     Route: 051
  22. PEGINTERFERON ALFA-2B [Concomitant]
     Indication: HEPATITIS C
     Route: 058
     Dates: start: 20120222
  23. WARFARIN POTASSIUM [Concomitant]
     Route: 048
     Dates: start: 20120426
  24. LOCOID [Concomitant]
     Route: 061

REACTIONS (1)
  - DECREASED APPETITE [None]
